FAERS Safety Report 17251686 (Version 2)
Quarter: 2020Q1

REPORT INFORMATION
  Report Type: Spontaneous
  Country: US (occurrence: US)
  Receive Date: 20200109
  Receipt Date: 20200213
  Transmission Date: 20200409
  Serious: Yes (Other)
  Sender: FDA-Public Use
  Company Number: US-PFIZER INC-2020009538

PATIENT
  Age: 40 Year
  Sex: Female

DRUGS (1)
  1. ADVIL PM [Suspect]
     Active Substance: DIPHENHYDRAMINE CITRATE\IBUPROFEN
     Dosage: UNK

REACTIONS (6)
  - Nervousness [Unknown]
  - Heart rate decreased [Unknown]
  - Anxiety [Unknown]
  - Dyspnoea [Unknown]
  - Sleep disorder [Unknown]
  - Cardiac arrest [Unknown]
